FAERS Safety Report 7169927-4 (Version None)
Quarter: 2010Q4

REPORT INFORMATION
  Report Type: 
  Country: None (occurrence: None)
  Receive Date: 20101217
  Receipt Date: 20101207
  Transmission Date: 20110411
  Serious: Yes (Other)
  Sender: FDA-Public Use
  Company Number: CA-JNJFOC-20101203487

PATIENT
  Sex: Male
  Weight: 71 kg

DRUGS (7)
  1. REMICADE [Suspect]
     Indication: COLITIS ULCERATIVE
     Route: 042
  2. REMICADE [Suspect]
     Route: 042
  3. REMICADE [Suspect]
     Route: 042
  4. PREDNISONE [Concomitant]
     Route: 048
  5. ATORVASTATIN [Concomitant]
     Route: 048
  6. PURINETHOL [Concomitant]
     Dosage: 1 1/2 TABS PO OD
     Route: 048
  7. METOPROLOL [Concomitant]
     Route: 048

REACTIONS (2)
  - COLITIS ULCERATIVE [None]
  - WEIGHT DECREASED [None]
